FAERS Safety Report 6932814-8 (Version None)
Quarter: 2010Q3

REPORT INFORMATION
  Report Type: 
  Country: None (occurrence: None)
  Receive Date: 20100819
  Receipt Date: 20100811
  Transmission Date: 20110219
  Serious: Yes (Life-Threatening)
  Sender: FDA-Public Use
  Company Number: IT-CUBIST-2010S1000403

PATIENT
  Age: 45 Year
  Sex: Male

DRUGS (4)
  1. CUBICIN [Suspect]
     Indication: BACTERIAL SEPSIS
     Route: 042
     Dates: start: 20100512, end: 20100512
  2. CUBICIN [Suspect]
     Indication: MEDIASTINITIS
     Route: 042
     Dates: start: 20100512, end: 20100512
  3. CUBICIN [Suspect]
     Indication: WOUND INFECTION
     Route: 042
     Dates: start: 20100512, end: 20100512
  4. CLINDAMYCIN HYDROCHLORIDE [Concomitant]
     Indication: PRODUCT USED FOR UNKNOWN INDICATION
     Route: 042

REACTIONS (2)
  - HYPERSENSITIVITY [None]
  - UPPER AIRWAY OBSTRUCTION [None]
